FAERS Safety Report 21165850 (Version 1)
Quarter: 2022Q3

REPORT INFORMATION
  Report Type: Spontaneous
  Country: US (occurrence: US)
  Receive Date: 20220803
  Receipt Date: 20220803
  Transmission Date: 20221027
  Serious: Yes (Hospitalization, Other)
  Sender: FDA-Public Use
  Company Number: US-MYLANLABS-2022M1082967

PATIENT
  Age: 11 Month
  Sex: Male

DRUGS (6)
  1. ETOPOSIDE [Suspect]
     Active Substance: ETOPOSIDE
     Indication: Osteoma cutis
     Dosage: UNK, CYCLE, INDUCTION CHEMOTHERAPY REGIMEN; 3 CYCLES
     Route: 065
  2. CARBOPLATIN [Suspect]
     Active Substance: CARBOPLATIN
     Indication: Osteoma cutis
     Dosage: UNK, CYCLE, 3 CYCLES
     Route: 065
  3. CISPLATIN [Suspect]
     Active Substance: CISPLATIN
     Indication: Osteoma cutis
     Dosage: UNK, CYCLE, INDUCTION CHEMOTHERAPY REGIMEN; 3 CYCLES
     Route: 065
  4. CYCLOPHOSPHAMIDE [Suspect]
     Active Substance: CYCLOPHOSPHAMIDE
     Indication: Osteoma cutis
     Dosage: UNK, CYCLE, INDUCTION CHEMOTHERAPY REGIMEN; 3 CYCLES
     Route: 065
  5. THIOTEPA [Suspect]
     Active Substance: THIOTEPA
     Indication: Osteoma cutis
     Dosage: UNK, CYCLE, HIGH-DOSE; 3 CYCLES
     Route: 065
  6. VINCRISTINE [Concomitant]
     Active Substance: VINCRISTINE
     Indication: Osteoma cutis
     Dosage: UNK , CYCLE, INDUCTION CHEMOTHERAPY REGIMEN; 3 CYCLES
     Route: 065

REACTIONS (5)
  - Dysphagia [Unknown]
  - Mucosal inflammation [Unknown]
  - Myelosuppression [Unknown]
  - Deafness neurosensory [Unknown]
  - Off label use [Unknown]
